FAERS Safety Report 23852187 (Version 1)
Quarter: 2024Q2

REPORT INFORMATION
  Report Type: Spontaneous
  Country: US (occurrence: None)
  Receive Date: 20240513
  Receipt Date: 20240513
  Transmission Date: 20240715
  Serious: No
  Sender: FDA-Public Use
  Company Number: None

PATIENT
  Age: 48 Year
  Sex: Female

DRUGS (1)
  1. COSENTYX [Suspect]
     Active Substance: SECUKINUMAB
     Indication: Osteoporosis
     Dosage: FREQUENCY : MONTHLY;?
     Route: 058
     Dates: start: 202403

REACTIONS (1)
  - Conjunctivitis [None]
